FAERS Safety Report 7144889-4 (Version None)
Quarter: 2010Q4

REPORT INFORMATION
  Report Type: 
  Country: None (occurrence: None)
  Receive Date: 20101123
  Receipt Date: 20101108
  Transmission Date: 20110411
  Serious: Yes (Hospitalization, Other)
  Sender: FDA-Public Use
  Company Number: DSU-2010-06141

PATIENT
  Age: 63 Year
  Sex: Female

DRUGS (6)
  1. BENICAR HCT [Suspect]
     Indication: HYPERTENSION
     Dosage: 20/12.5 MG (QD), PER ORAL
     Route: 048
     Dates: start: 20070303
  2. LIPITOR [Suspect]
     Indication: HYPERLIPIDAEMIA
     Dosage: 10 MG (10 MG, QD), PER ORAL
     Route: 048
     Dates: start: 20070303
  3. METOPROLOL [Concomitant]
  4. GLIBENCLAMIDE [Concomitant]
  5. LOSARTAN POTASSIUM [Concomitant]
  6. ACETYLSALICYILIC ACID [Concomitant]

REACTIONS (6)
  - ABDOMINAL DISTENSION [None]
  - ACUTE ABDOMEN [None]
  - APPENDICITIS [None]
  - CARDIOMEGALY [None]
  - HYPERHIDROSIS [None]
  - ISCHAEMIC CARDIOMYOPATHY [None]
